FAERS Safety Report 19056490 (Version 3)
Quarter: 2023Q2

REPORT INFORMATION
  Report Type: Report from Study
  Country: DE (occurrence: DE)
  Receive Date: 20210325
  Receipt Date: 20230427
  Transmission Date: 20230721
  Serious: Yes (Other)
  Sender: FDA-Public Use
  Company Number: NVSC2021DE063484

PATIENT
  Sex: Female
  Weight: 73 kg

DRUGS (7)
  1. PROMACTA [Suspect]
     Active Substance: ELTROMBOPAG OLAMINE
     Indication: Immune thrombocytopenia
     Dosage: 50 MG, QD
     Route: 048
     Dates: start: 20200612, end: 20200921
  2. PROMACTA [Suspect]
     Active Substance: ELTROMBOPAG OLAMINE
     Dosage: 25 MG, QD
     Route: 048
     Dates: start: 20200922, end: 20210208
  3. PROMACTA [Suspect]
     Active Substance: ELTROMBOPAG OLAMINE
     Dosage: 25 MG, EVERY OTHER DAY
     Route: 048
     Dates: start: 20210209
  4. LEVOTHYROXINE [Concomitant]
     Active Substance: LEVOTHYROXINE
     Indication: Immune thrombocytopenia
     Dosage: 125 UG, QD (70+50)
     Route: 048
     Dates: start: 20201119, end: 20201210
  5. LEVOTHYROXINE [Concomitant]
     Active Substance: LEVOTHYROXINE
     Dosage: 50 UG (Q2D)
     Route: 048
     Dates: start: 20201211
  6. FAMOTIDINE [Concomitant]
     Active Substance: FAMOTIDINE
     Indication: Abdominal discomfort
     Dosage: 20 MG (AS NEEDED)
     Route: 048
     Dates: start: 20220525
  7. METAMIZOLE [Concomitant]
     Active Substance: METAMIZOLE
     Indication: Arthritis
     Dosage: 500 MG (Q3D)
     Route: 048
     Dates: start: 20220525

REACTIONS (1)
  - Polyneuropathy [Recovered/Resolved]

NARRATIVE: CASE EVENT DATE: 20201228
